FAERS Safety Report 12886785 (Version 11)
Quarter: 2020Q2

REPORT INFORMATION
  Report Type: Report from Study
  Country: US (occurrence: US)
  Receive Date: 20161026
  Receipt Date: 20200501
  Transmission Date: 20200713
  Serious: Yes (Hospitalization, Other)
  Sender: FDA-Public Use
  Company Number: US-ACTELION-A-NJ2015-125808

PATIENT
  Age: 31 Year
  Sex: Female
  Weight: 82.99 kg

DRUGS (8)
  1. OPSUMIT [Suspect]
     Active Substance: MACITENTAN
     Indication: PULMONARY ARTERIAL HYPERTENSION
     Dosage: 10 MG, QD
     Route: 048
     Dates: start: 20150924
  2. SILDENAFIL CITRATE. [Concomitant]
     Active Substance: SILDENAFIL CITRATE
  3. DIGOXIN. [Concomitant]
     Active Substance: DIGOXIN
     Dosage: 0.125 UNK
  4. UPTRAVI [Suspect]
     Active Substance: SELEXIPAG
     Indication: PULMONARY ARTERIAL HYPERTENSION
     Dosage: 600 MCG, BID
     Route: 048
  5. OMEPRAZOLE. [Concomitant]
     Active Substance: OMEPRAZOLE
  6. REMODULIN [Concomitant]
     Active Substance: TREPROSTINIL
  7. ALDACTONE [Concomitant]
     Active Substance: SPIRONOLACTONE
     Dosage: 100 MG, QD
  8. BUMEX [Concomitant]
     Active Substance: BUMETANIDE
     Dosage: 2 MG, BID
     Route: 042

REACTIONS (29)
  - Ascites [Unknown]
  - Rhinorrhoea [Recovered/Resolved]
  - Swelling [Recovered/Resolved]
  - Chest pain [Recovered/Resolved]
  - Acute left ventricular failure [Recovered/Resolved]
  - Viral infection [Recovered/Resolved]
  - Cough [Recovered/Resolved]
  - Hypokalaemia [Unknown]
  - Dyspnoea [Recovered/Resolved]
  - Acute kidney injury [Unknown]
  - Troponin I increased [Not Recovered/Not Resolved]
  - Paraesthesia [Recovered/Resolved]
  - Headache [Unknown]
  - Cellulitis [Recovered/Resolved]
  - Pain [Recovered/Resolved]
  - Urine output decreased [Recovered/Resolved]
  - Hyperbilirubinaemia [Unknown]
  - Condition aggravated [Unknown]
  - Cardiac failure [Recovered/Resolved]
  - N-terminal prohormone brain natriuretic peptide increased [Recovered/Resolved]
  - Abdominal pain upper [Unknown]
  - Vomiting [Unknown]
  - Product dose omission [Unknown]
  - Orthopnoea [Recovering/Resolving]
  - Pulmonary arterial hypertension [Unknown]
  - Abdominal distension [Recovering/Resolving]
  - Erythema [Recovered/Resolved]
  - Haematochezia [Recovering/Resolving]
  - Hypoaesthesia [Recovered/Resolved]

NARRATIVE: CASE EVENT DATE: 20151003
